FAERS Safety Report 12412063 (Version 2)
Quarter: 2019Q2

REPORT INFORMATION
  Report Type: Spontaneous
  Country: US (occurrence: US)
  Receive Date: 20160527
  Receipt Date: 20190514
  Transmission Date: 20190711
  Serious: Yes (Death, Life-Threatening, Hospitalization, Disabling, Other)
  Sender: FDA-Public Use
  Company Number: US-BRISTOL-MYERS SQUIBB COMPANY-BMS-2016-040898

PATIENT
  Sex: Female

DRUGS (1)
  1. COUMADINE [Suspect]
     Active Substance: WARFARIN SODIUM
     Indication: PRODUCT USED FOR UNKNOWN INDICATION
     Route: 065

REACTIONS (8)
  - General physical health deterioration [Unknown]
  - Atrial fibrillation [Unknown]
  - International normalised ratio abnormal [Unknown]
  - Blindness [Unknown]
  - Upper respiratory tract infection [Unknown]
  - Lung disorder [Unknown]
  - Cardiac dysfunction [Unknown]
  - Blood test abnormal [Unknown]
